FAERS Safety Report 5828077-7 (Version None)
Quarter: 2008Q3

REPORT INFORMATION
  Report Type: 
  Country: None (occurrence: None)
  Receive Date: 20080730
  Receipt Date: 20070904
  Transmission Date: 20090109
  Serious: No
  Sender: FDA-Public Use
  Company Number: A0666312A

PATIENT
  Age: 2 Month
  Sex: Female

DRUGS (2)
  1. ZANTAC [Suspect]
     Indication: DRUG USE FOR UNKNOWN INDICATION
     Dosage: .5ML TWICE PER DAY
     Route: 048
     Dates: start: 20070723
  2. NO CONCURRENT MEDICATION [Concomitant]

REACTIONS (1)
  - VOMITING [None]
